FAERS Safety Report 6779050-6 (Version None)
Quarter: 2010Q2

REPORT INFORMATION
  Report Type: 
  Country: None (occurrence: None)
  Receive Date: 20100618
  Receipt Date: 20100610
  Transmission Date: 20101027
  Serious: Yes (Other)
  Sender: FDA-Public Use
  Company Number: BR-PFIZER INC-2008000387

PATIENT
  Age: 37 Year
  Sex: Male
  Weight: 61 kg

DRUGS (2)
  1. VIAGRA [Suspect]
     Dosage: 25 MG, WEEKLY
     Route: 048
  2. VIAGRA [Suspect]
     Dosage: 50 MG, WEEKLY
     Route: 048
     Dates: start: 20070101

REACTIONS (3)
  - ERYTHEMA [None]
  - INTENTIONAL DRUG MISUSE [None]
  - SOMATOFORM DISORDER [None]
